APPROVED DRUG PRODUCT: LODOCO
Active Ingredient: COLCHICINE
Strength: 0.5MG
Dosage Form/Route: TABLET;ORAL
Application: N215727 | Product #001
Applicant: AGEPHA PHARMA FZ LLC
Approved: Jun 16, 2023 | RLD: Yes | RS: Yes | Type: RX

PATENTS:
Patent 12364675 | Expires: Nov 1, 2033
Patent 12233035 | Expires: Nov 1, 2033
Patent 11026901 | Expires: Nov 1, 2033
Patent 11026900 | Expires: Nov 1, 2033
Patent 11026899 | Expires: Nov 1, 2033
Patent 10842762 | Expires: Nov 1, 2033
Patent 10265281 | Expires: Nov 1, 2033
Patent 10206891 | Expires: Nov 1, 2033
Patent 10130585 | Expires: May 9, 2034
Patent 9744144 | Expires: Nov 1, 2033
Patent 11944594 | Expires: Nov 1, 2033
Patent 12280025 | Expires: Nov 1, 2033
Patent 11944595 | Expires: Nov 1, 2033
Patent 11944595 | Expires: Nov 1, 2033